FAERS Safety Report 6642489-3 (Version None)
Quarter: 2010Q1

REPORT INFORMATION
  Report Type: 
  Country: None (occurrence: None)
  Receive Date: 20100319
  Receipt Date: 20100308
  Transmission Date: 20100710
  Serious: Yes (Hospitalization)
  Sender: FDA-Public Use
  Company Number: CO-JNJFOC-20100303600

PATIENT
  Age: 36 Year
  Sex: Male

DRUGS (4)
  1. REMICADE [Suspect]
     Indication: CROHN'S DISEASE
     Route: 042
     Dates: start: 20091009
  2. REMICADE [Suspect]
     Route: 042
     Dates: start: 20091009
  3. CORTICOSTEROID UNSPECIFIED [Concomitant]
  4. MESALAZINE [Concomitant]

REACTIONS (2)
  - HOSPITALISATION [None]
  - TUBERCULOSIS [None]
